FAERS Safety Report 25628148 (Version 2)
Quarter: 2025Q3

REPORT INFORMATION
  Report Type: Spontaneous
  Country: US (occurrence: US)
  Receive Date: 20250731
  Receipt Date: 20250814
  Transmission Date: 20251021
  Serious: Yes (Life-Threatening, Hospitalization, Other)
  Sender: ALKEM
  Company Number: None

PATIENT
  Age: 44 Year
  Sex: Female

DRUGS (2)
  1. MYCOPHENOLATE MOFETIL [Suspect]
     Active Substance: MYCOPHENOLATE MOFETIL
     Indication: Immunosuppressant drug therapy
     Route: 065
  2. PREDNISONE [Suspect]
     Active Substance: PREDNISONE
     Indication: Goodpasture^s syndrome
     Dosage: 5 MILLIGRAM, QD (EVERY 1 DAY)
     Route: 065

REACTIONS (6)
  - Acute respiratory distress syndrome [Recovering/Resolving]
  - Blood beta-D-glucan increased [Recovering/Resolving]
  - Pseudomonas test positive [Recovering/Resolving]
  - Cytomegalovirus infection [Recovering/Resolving]
  - Disseminated varicella zoster virus infection [Recovering/Resolving]
  - Varicella zoster pneumonia [Recovering/Resolving]
